FAERS Safety Report 18366685 (Version 1)
Quarter: 2020Q4

REPORT INFORMATION
  Report Type: Spontaneous
  Country: AT (occurrence: AT)
  Receive Date: 20201009
  Receipt Date: 20201009
  Transmission Date: 20210114
  Serious: Yes (Hospitalization)
  Sender: FDA-Public Use
  Company Number: AT-PFIZER INC-2020384908

PATIENT
  Age: 30 Year
  Sex: Female

DRUGS (1)
  1. CRIZOTINIB [Suspect]
     Active Substance: CRIZOTINIB
     Indication: NON-SMALL CELL LUNG CANCER
     Dosage: UNK
     Dates: start: 201608, end: 2017

REACTIONS (4)
  - Neoplasm progression [Unknown]
  - Fungal oesophagitis [Unknown]
  - Gastritis [Unknown]
  - Dysphagia [Unknown]

NARRATIVE: CASE EVENT DATE: 201707
